FAERS Safety Report 5694116-X (Version None)
Quarter: 2008Q2

REPORT INFORMATION
  Report Type: 
  Country: None (occurrence: None)
  Receive Date: 20080402
  Receipt Date: 20080325
  Transmission Date: 20081010
  Serious: Yes (Hospitalization)
  Sender: FDA-Public Use
  Company Number: 2008BI006065

PATIENT
  Sex: Male

DRUGS (1)
  1. AVONEX [Suspect]
     Indication: MULTIPLE SCLEROSIS
     Dosage: 30 UG;QW;IM
     Route: 030
     Dates: start: 20060817, end: 20071101

REACTIONS (6)
  - IMMOBILE [None]
  - MOTOR DYSFUNCTION [None]
  - NECK PAIN [None]
  - ROAD TRAFFIC ACCIDENT [None]
  - THROMBOSIS [None]
  - URINARY TRACT INFECTION [None]
